FAERS Safety Report 22245251 (Version 1)
Quarter: 2023Q2

REPORT INFORMATION
  Report Type: Spontaneous
  Country: DE (occurrence: DE)
  Receive Date: 20230424
  Receipt Date: 20230424
  Transmission Date: 20230721
  Serious: Yes (Other)
  Sender: FDA-Public Use
  Company Number: DE-ASTELLAS-2023US011198

PATIENT
  Age: 74 Year
  Sex: Female

DRUGS (1)
  1. PADCEV [Suspect]
     Active Substance: ENFORTUMAB VEDOTIN-EJFV
     Indication: Product used for unknown indication
     Dosage: UNK UNK, UNKNOWN FREQ.
     Route: 065
     Dates: start: 20221107, end: 20230116

REACTIONS (4)
  - Erythema [Unknown]
  - Superinfection fungal [Recovering/Resolving]
  - Skin disorder [Unknown]
  - Dermatitis contact [Recovering/Resolving]
